FAERS Safety Report 8509892-8 (Version None)
Quarter: 2012Q2

REPORT INFORMATION
  Report Type: 
  Country: None (occurrence: None)
  Receive Date: 20120405
  Receipt Date: 20090623
  Transmission Date: 20120825
  Serious: Yes (Other)
  Sender: FDA-Public Use
  Company Number: PHEH2009US06571

PATIENT
  Sex: Female

DRUGS (12)
  1. KLONOPIN [Concomitant]
  2. PLAVIX [Concomitant]
  3. CALCIUM WITH VITAMIN D (CALCIUM PHOSPHATE, CALCIUM SODIUM LACTATE, ERG [Concomitant]
  4. DEXLANSOPRAZOLE [Concomitant]
  5. PROTONIX [Concomitant]
  6. SOMA [Concomitant]
  7. RECLAST [Suspect]
     Indication: OSTEOPOROSIS
     Dosage: INFUSION
  8. AMBIEN [Concomitant]
  9. DEPAKOTE [Concomitant]
  10. REQUIP [Concomitant]
  11. FOLIC ACID [Concomitant]
  12. LORTAB [Concomitant]

REACTIONS (8)
  - BACK PAIN [None]
  - ARTHRITIS [None]
  - ABDOMINAL PAIN [None]
  - NERVOUSNESS [None]
  - FATIGUE [None]
  - ANXIETY [None]
  - MUSCLE SPASMS [None]
  - HEADACHE [None]
